FAERS Safety Report 7128096-7 (Version None)
Quarter: 2010Q4

REPORT INFORMATION
  Report Type: 
  Country: None (occurrence: None)
  Receive Date: 20101112
  Receipt Date: 20101102
  Transmission Date: 20110411
  Serious: Yes (Hospitalization, Other)
  Sender: FDA-Public Use
  Company Number: 2010SP028727

PATIENT
  Age: 22 Year
  Sex: Female
  Weight: 97.5234 kg

DRUGS (3)
  1. NUVARING [Suspect]
     Indication: CONTRACEPTION
     Dosage: ; VAG
     Route: 067
     Dates: start: 20071029
  2. MULTI-VITAMIN [Concomitant]
  3. XANAX [Concomitant]

REACTIONS (11)
  - BLOOD PRESSURE INCREASED [None]
  - CONTUSION [None]
  - HEAD INJURY [None]
  - HIRSUTISM [None]
  - INSOMNIA [None]
  - NAUSEA [None]
  - POLYCYSTIC OVARIES [None]
  - PULMONARY EMBOLISM [None]
  - SEASONAL ALLERGY [None]
  - SINUS TACHYCARDIA [None]
  - TRANSIENT ISCHAEMIC ATTACK [None]
